FAERS Safety Report 8589022-7 (Version None)
Quarter: 2012Q3

REPORT INFORMATION
  Report Type: 
  Country: None (occurrence: None)
  Receive Date: 20120813
  Receipt Date: 20120716
  Transmission Date: 20120928
  Serious: No
  Sender: FDA-Public Use
  Company Number: US-009507513-1208USA000934

PATIENT

DRUGS (2)
  1. MIRALAX [Suspect]
     Indication: MEDICAL OBSERVATION
  2. MIRALAX [Suspect]
     Indication: COLONOSCOPY
     Dosage: UNK, QD

REACTIONS (3)
  - MUSCLE SPASMS [None]
  - INCORRECT DRUG ADMINISTRATION DURATION [None]
  - NAUSEA [None]
